FAERS Safety Report 5614744-7 (Version None)
Quarter: 2008Q1

REPORT INFORMATION
  Report Type: 
  Country: None (occurrence: None)
  Receive Date: 20080205
  Receipt Date: 20080126
  Transmission Date: 20080703
  Serious: Yes (Hospitalization)
  Sender: FDA-Public Use
  Company Number: US-ELI_LILLY_AND_COMPANY-US200801005859

PATIENT
  Sex: Male

DRUGS (17)
  1. BYETTA [Suspect]
     Dosage: 5 UG, 2/D
     Route: 058
     Dates: start: 20060501, end: 20070101
  2. BYETTA [Suspect]
     Dosage: 10 UG, 2/D
     Route: 058
     Dates: start: 20070101, end: 20080101
  3. BYETTA [Suspect]
     Dosage: 10 UG, 2/D
     Route: 058
     Dates: start: 20080126
  4. ENALAPRIL MALEATE [Concomitant]
     Indication: BLOOD PRESSURE
     Dosage: 20 MG, 2/D
  5. LIPITOR [Concomitant]
     Indication: BLOOD CHOLESTEROL INCREASED
     Dosage: 40 MG, DAILY (1/D)
     Dates: end: 20070817
  6. LIPITOR [Concomitant]
     Dosage: 20 MG, DAILY (1/D)
     Dates: start: 20070817
  7. DIOVAN [Concomitant]
     Indication: HYPERTENSION
     Dosage: 320 MG, DAILY (1/D)
  8. NORVASC [Concomitant]
     Dosage: 5 MG, DAILY (1/D)
  9. ATENOLOL [Concomitant]
     Dosage: 100 MG, EACH MORNING
     Dates: start: 20071217
  10. ATENOLOL [Concomitant]
     Dosage: 50 MG, EACH EVENING
     Dates: start: 20071217
  11. METFORMIN HCL [Concomitant]
     Dosage: 1000 MG, 2/D
  12. GLYBURIDE [Concomitant]
     Dosage: 5 MG, 2/D
     Dates: end: 20080121
  13. GLYBURIDE [Concomitant]
     Dosage: 10 MG, EACH MORNING
     Dates: start: 20080121
  14. GLYBURIDE [Concomitant]
     Dosage: 5 MG, EACH EVENING
     Dates: start: 20080121
  15. NIASPAN [Concomitant]
     Dosage: 1000 MG, 2/D
  16. NIASPAN [Concomitant]
     Dosage: 1000 MG, EACH EVENING
  17. ASPIRIN [Concomitant]
     Dosage: 81 MG, DAILY (1/D)

REACTIONS (8)
  - BLOOD GLUCOSE INCREASED [None]
  - BLOOD POTASSIUM DECREASED [None]
  - BLOOD PRESSURE FLUCTUATION [None]
  - BURNING SENSATION [None]
  - COUGH [None]
  - INFLUENZA [None]
  - MUSCLE SPASMS [None]
  - NASAL CONGESTION [None]
